FAERS Safety Report 20362518 (Version 2)
Quarter: 2022Q3

REPORT INFORMATION
  Report Type: Report from Study
  Country: KR (occurrence: KR)
  Receive Date: 20220121
  Receipt Date: 20220923
  Transmission Date: 20221027
  Serious: Yes (Other)
  Sender: FDA-Public Use
  Company Number: KR-TAKEDA-2022TUS002599

PATIENT
  Age: 59 Year
  Sex: Male
  Weight: 73.1 kg

DRUGS (13)
  1. VEDOLIZUMAB [Suspect]
     Active Substance: VEDOLIZUMAB
     Indication: Colitis ulcerative
     Dosage: 300 MILLIGRAM
     Route: 042
     Dates: start: 20210501
  2. NORVASC [Concomitant]
     Active Substance: AMLODIPINE BESYLATE
     Dosage: 5 MILLIGRAM, BID
     Route: 048
     Dates: start: 20210801, end: 20210804
  3. SIMVASTAD [Concomitant]
     Dosage: 20 MILLIGRAM, QD
     Route: 048
     Dates: start: 20210801, end: 20210804
  4. LOSARTAN [Concomitant]
     Active Substance: LOSARTAN
     Dosage: 50 MILLIGRAM, QD
     Route: 048
     Dates: start: 20210801, end: 20210804
  5. CARVEDILOL [Concomitant]
     Active Substance: CARVEDILOL
     Dosage: 125 MILLIGRAM, QD
     Route: 048
     Dates: start: 20210801, end: 20210804
  6. Cadil [Concomitant]
     Dosage: 2 MILLIGRAM, QD
     Route: 048
     Dates: start: 20210801, end: 20210804
  7. CORTISOL [Concomitant]
     Active Substance: HYDROCORTISONE
     Dosage: 100 MILLIGRAM
     Route: 042
     Dates: start: 20210801, end: 20210804
  8. DONGA ACETAMINOPHEN [Concomitant]
     Dosage: 20 MILLIGRAM, BID
     Route: 048
     Dates: start: 20210802, end: 20210802
  9. PREDNISOLONE [Concomitant]
     Active Substance: PREDNISOLONE
     Dosage: 40 MILLIGRAM, BID
     Route: 048
     Dates: start: 20210802, end: 20210802
  10. PREDNISOLONE [Concomitant]
     Active Substance: PREDNISOLONE
     Dosage: 20 MILLIGRAM, QD
     Route: 048
     Dates: start: 20210501, end: 20210518
  11. PREDNISOLONE [Concomitant]
     Active Substance: PREDNISOLONE
     Dosage: 15 MILLIGRAM, QD
     Route: 048
     Dates: start: 20210501, end: 20210518
  12. PREDNISOLONE [Concomitant]
     Active Substance: PREDNISOLONE
     Dosage: 10 MILLIGRAM, QD
     Route: 048
     Dates: start: 20210502, end: 20210601
  13. PREDNISOLONE [Concomitant]
     Active Substance: PREDNISOLONE
     Dosage: 5 MILLIGRAM, QD
     Route: 048
     Dates: start: 20210502, end: 20210601

REACTIONS (1)
  - Colitis ulcerative [Recovered/Resolved]

NARRATIVE: CASE EVENT DATE: 20210801
